FAERS Safety Report 6017741-5 (Version None)
Quarter: 2008Q4

REPORT INFORMATION
  Report Type: 
  Country: None (occurrence: None)
  Receive Date: 20081223
  Receipt Date: 20081212
  Transmission Date: 20090506
  Serious: Yes (Life-Threatening, Other)
  Sender: FDA-Public Use
  Company Number: US-JNJFOC-20081005380

PATIENT
  Sex: Female

DRUGS (9)
  1. INFLIXIMAB [Suspect]
     Indication: TAKAYASU'S ARTERITIS
     Dosage: HAD 41 MONTHS OF TREATMENT
     Route: 042
  2. METHOTREXATE [Concomitant]
  3. FOLIC ACID [Concomitant]
  4. ASPIRIN [Concomitant]
  5. FOSAMEX [Concomitant]
  6. CALCIUM [Concomitant]
  7. COZAAR [Concomitant]
  8. TIAZAC [Concomitant]
  9. VICODIN [Concomitant]

REACTIONS (1)
  - BREAST CANCER [None]
